FAERS Safety Report 9434774 (Version 2)
Quarter: 2013Q3

REPORT INFORMATION
  Report Type: Spontaneous
  Country: GB (occurrence: GB)
  Receive Date: 20130801
  Receipt Date: 20130814
  Transmission Date: 20140515
  Serious: Yes (Hospitalization)
  Sender: FDA-Public Use
  Company Number: GB-PFIZER INC-2013220816

PATIENT
  Age: 25 Year
  Sex: Male
  Weight: 70.7 kg

DRUGS (10)
  1. TAZOCIN [Suspect]
     Indication: INFECTION
     Dosage: 4.5 G, 3X/DAY
     Route: 042
     Dates: start: 20130427, end: 20130429
  2. TAZOCIN [Suspect]
     Dosage: 4.5 G, 3X/DAY
     Route: 042
     Dates: start: 20130608, end: 20130610
  3. RIFAMPICIN [Suspect]
     Indication: ENDOCARDITIS BACTERIAL
     Dosage: 300 MG, 2X/DAY
     Route: 042
     Dates: start: 20130429, end: 20130610
  4. METHADONE HYDROCHLORIDE [Concomitant]
     Dosage: 60 ML, 1X/DAY
  5. FLUCLOXACILLIN [Concomitant]
     Dosage: UNK
     Dates: end: 20130429
  6. CLINDAMYCIN [Concomitant]
     Dosage: UNK
     Dates: end: 20130429
  7. CO-AMOXICLAV [Concomitant]
     Dosage: UNK
  8. HEROIN [Concomitant]
     Dosage: UNK
     Route: 042
  9. PARACETAMOL [Concomitant]
     Dosage: UNK
  10. VANCOMYCIN [Concomitant]
     Dosage: UNK
     Route: 042
     Dates: start: 20130429

REACTIONS (7)
  - Hepatitis cholestatic [Recovering/Resolving]
  - Liver function test abnormal [Recovering/Resolving]
  - Nausea [Unknown]
  - Vomiting [Unknown]
  - Jaundice [Unknown]
  - Encephalopathy [Unknown]
  - Cholecystitis [Unknown]
